FAERS Safety Report 21130719 (Version 2)
Quarter: 2022Q3

REPORT INFORMATION
  Report Type: Report from Study
  Country: IN (occurrence: IN)
  Receive Date: 20220726
  Receipt Date: 20220922
  Transmission Date: 20221026
  Serious: Yes (Other)
  Sender: FDA-Public Use
  Company Number: IN-TAKEDA-2022TUS045448

PATIENT
  Age: 37 Year
  Sex: Female

DRUGS (1)
  1. VEDOLIZUMAB [Suspect]
     Active Substance: VEDOLIZUMAB
     Indication: Colitis ulcerative
     Dosage: 300 MILLIGRAM
     Route: 042
     Dates: start: 20211002

REACTIONS (6)
  - Haematochezia [Unknown]
  - Mucous stools [Unknown]
  - Weight increased [Unknown]
  - Stress [Unknown]
  - Abdominal distension [Unknown]
  - Inappropriate schedule of product administration [Unknown]
